FAERS Safety Report 15253847 (Version 1)
Quarter: 2018Q4

REPORT INFORMATION
  Report Type: Spontaneous
  Country: US (occurrence: US)
  Receive Date: 20180808
  Receipt Date: 20180808
  Transmission Date: 20190204
  Serious: No
  Sender: FDA-Public Use
  Company Number: US-ELI_LILLY_AND_COMPANY-US201808003022

PATIENT
  Sex: Female

DRUGS (1)
  1. ABEMACICLIB 100MG [Suspect]
     Active Substance: ABEMACICLIB
     Indication: BREAST CANCER FEMALE
     Dosage: 100 MG, UNKNOWN
     Route: 065
     Dates: start: 20180709

REACTIONS (1)
  - Renal impairment [Unknown]
